FAERS Safety Report 10697060 (Version 1)
Quarter: 2015Q1

REPORT INFORMATION
  Report Type: Spontaneous
  Country: US (occurrence: None)
  Receive Date: 20150107
  Receipt Date: 20150107
  Transmission Date: 20150721
  Serious: No
  Sender: FDA-Public Use
  Company Number: None

PATIENT
  Age: 61 Year
  Sex: Female
  Weight: 72.58 kg

DRUGS (5)
  1. OSPHENA [Suspect]
     Active Substance: OSPEMIFENE
     Indication: VULVOVAGINAL DRYNESS
     Route: 048
     Dates: start: 201311, end: 20140715
  2. OSPHENA [Suspect]
     Active Substance: OSPEMIFENE
     Indication: PAIN
     Route: 048
     Dates: start: 201311, end: 20140715
  3. ADVAIR HFA [Suspect]
     Active Substance: FLUTICASONE PROPIONATE\SALMETEROL XINAFOATE
  4. PROTONIX [Concomitant]
     Active Substance: PANTOPRAZOLE SODIUM
  5. SYNTHROID [Suspect]
     Active Substance: LEVOTHYROXINE SODIUM

REACTIONS (5)
  - Pain [None]
  - Muscle spasms [None]
  - Vulvovaginal discomfort [None]
  - Vaginal discharge [None]
  - Sleep disorder due to general medical condition, insomnia type [None]

NARRATIVE: CASE EVENT DATE: 20140615
